FAERS Safety Report 11700394 (Version 1)
Quarter: 2015Q4

REPORT INFORMATION
  Report Type: Spontaneous
  Country: US (occurrence: US)
  Receive Date: 20151105
  Receipt Date: 20151105
  Transmission Date: 20160304
  Serious: Yes (Other)
  Sender: FDA-Public Use
  Company Number: US-ENDO PHARMACEUTICALS INC.-2015-003774

PATIENT
  Age: 26 Year
  Sex: Male
  Weight: 79.45 kg

DRUGS (1)
  1. TESTOPEL [Suspect]
     Active Substance: TESTOSTERONE
     Indication: BLOOD TESTOSTERONE DECREASED
     Dosage: 10 PELLETS
     Route: 065
     Dates: start: 201312, end: 201403

REACTIONS (6)
  - Prescribed overdose [Recovered/Resolved]
  - Unevaluable event [Not Recovered/Not Resolved]
  - Implant site induration [Not Recovered/Not Resolved]
  - Foreign body [Not Recovered/Not Resolved]
  - Implant site necrosis [Not Recovered/Not Resolved]
  - Implant site hypersensitivity [Recovered/Resolved]

NARRATIVE: CASE EVENT DATE: 201312
